FAERS Safety Report 18287342 (Version 8)
Quarter: 2021Q2

REPORT INFORMATION
  Report Type: Report from Study
  Country: JP (occurrence: JP)
  Receive Date: 20200921
  Receipt Date: 20210625
  Transmission Date: 20210717
  Serious: Yes (Hospitalization, Other)
  Sender: FDA-Public Use
  Company Number: JP-BRISTOL-MYERS SQUIBB COMPANY-BMS-2020-075472

PATIENT
  Age: 76 Year
  Sex: Male
  Weight: 49 kg

DRUGS (9)
  1. IPILIMUMAB [Suspect]
     Active Substance: IPILIMUMAB
     Indication: METASTATIC RENAL CELL CARCINOMA
     Dosage: ONE TIME DOSE
     Route: 041
     Dates: start: 20200820, end: 20200820
  2. ARGAMATE [Concomitant]
     Active Substance: CALCIUM POLYSTYRENE SULFONATE
     Indication: PRODUCT USED FOR UNKNOWN INDICATION
     Dosage: UNK
     Route: 048
  3. NIVOLUMAB [Suspect]
     Active Substance: NIVOLUMAB
     Dosage: 240 MILLIGRAM, ONE TIME DOSE
     Route: 041
     Dates: start: 20200910, end: 20200910
  4. IPILIMUMAB [Suspect]
     Active Substance: IPILIMUMAB
     Dosage: 49 MILLIGRAM, ONE TIME DOSE (1 MG/KG)
     Route: 041
     Dates: start: 20200910, end: 20200910
  5. SODIUM BICARBONATE. [Concomitant]
     Active Substance: SODIUM BICARBONATE
     Indication: PRODUCT USED FOR UNKNOWN INDICATION
     Dosage: UNK
     Route: 065
  6. MECOBALAMIN [Concomitant]
     Active Substance: METHYLCOBALAMIN
     Indication: PRODUCT USED FOR UNKNOWN INDICATION
     Dosage: UNK
     Route: 048
  7. TERAMURO AP JG [Concomitant]
     Indication: PRODUCT USED FOR UNKNOWN INDICATION
     Dosage: UNK
     Route: 048
  8. NIVOLUMAB [Suspect]
     Active Substance: NIVOLUMAB
     Indication: METASTATIC RENAL CELL CARCINOMA
     Dosage: 240 MILLIGRAM, ONE TIME DOSE
     Route: 041
     Dates: start: 20200820, end: 20200820
  9. ISOTONIC SODIUM CHLORIDE SOLUTION [Concomitant]
     Active Substance: SODIUM CHLORIDE
     Indication: PRODUCT USED FOR UNKNOWN INDICATION
     Dosage: UNK
     Route: 065

REACTIONS (3)
  - Cholestasis [Recovered/Resolved]
  - Ascites [Unknown]
  - Thyroiditis [Unknown]

NARRATIVE: CASE EVENT DATE: 20201015
